FAERS Safety Report 7652985 (Version 5)
Quarter: 2015Q4

REPORT INFORMATION
  Report Type: Spontaneous
  Country: US (occurrence: US)
  Receive Date: 20101102
  Receipt Date: 20151218
  Transmission Date: 20160305
  Serious: Yes (Hospitalization, Other)
  Sender: FDA-Public Use
  Company Number: US-JNJFOC-20101005943

PATIENT
  Age: 45 Year
  Sex: Female
  Weight: 79.2 kg

DRUGS (24)
  1. ORTHO-NOVUM 1/50 [Suspect]
     Active Substance: MESTRANOL\NORETHINDRONE
     Indication: CONTRACEPTION
     Route: 048
     Dates: start: 1974, end: 1984
  2. MICROGESTIN FE [Suspect]
     Active Substance: ETHINYL ESTRADIOL\FERROUS FUMARATE\NORETHINDRONE ACETATE
     Indication: PRODUCT USED FOR UNKNOWN INDICATION
     Route: 048
     Dates: start: 20060327, end: 20070327
  3. FLUNISOLIDE. [Concomitant]
     Active Substance: FLUNISOLIDE
     Route: 045
     Dates: start: 20060622, end: 20070622
  4. FLUOCINONIDE 0.05% [Concomitant]
     Active Substance: FLUOCINONIDE
     Route: 065
     Dates: start: 20061219, end: 20071219
  5. MICROGESTIN FE [Suspect]
     Active Substance: ETHINYL ESTRADIOL\FERROUS FUMARATE\NORETHINDRONE ACETATE
     Indication: PRODUCT USED FOR UNKNOWN INDICATION
     Route: 048
     Dates: start: 20050322, end: 20060202
  6. MICROGESTIN FE [Suspect]
     Active Substance: ETHINYL ESTRADIOL\FERROUS FUMARATE\NORETHINDRONE ACETATE
     Indication: PRODUCT USED FOR UNKNOWN INDICATION
     Route: 048
     Dates: start: 20050322, end: 20060223
  7. LEVLEN [Suspect]
     Active Substance: ETHINYL ESTRADIOL\LEVONORGESTREL
     Indication: PRODUCT USED FOR UNKNOWN INDICATION
     Route: 048
     Dates: start: 20050307, end: 20060202
  8. FLUOCINONIDE 0.05% [Concomitant]
     Active Substance: FLUOCINONIDE
     Route: 065
     Dates: start: 20051213, end: 20061105
  9. MICROGESTIN FE [Suspect]
     Active Substance: ETHINYL ESTRADIOL\FERROUS FUMARATE\NORETHINDRONE ACETATE
     Indication: PRODUCT USED FOR UNKNOWN INDICATION
     Route: 048
     Dates: start: 20050322, end: 20060329
  10. RETIN-A MICRO 0.04% [Concomitant]
     Route: 061
     Dates: start: 20051213, end: 20061222
  11. RETIN-A MICRO 0.04% [Concomitant]
     Route: 061
     Dates: start: 20061219, end: 20071219
  12. FLUNISOLIDE. [Concomitant]
     Active Substance: FLUNISOLIDE
     Route: 045
     Dates: start: 20060223, end: 20070223
  13. FLUNISOLIDE. [Concomitant]
     Active Substance: FLUNISOLIDE
     Route: 045
     Dates: start: 20061219, end: 20071219
  14. FLUNISOLIDE. [Concomitant]
     Active Substance: FLUNISOLIDE
     Route: 045
     Dates: start: 20061120, end: 20071120
  15. FLUNISOLIDE. [Concomitant]
     Active Substance: FLUNISOLIDE
     Route: 045
     Dates: start: 20050823, end: 20060202
  16. RETIN-A MICRO 0.04% [Concomitant]
     Route: 061
     Dates: start: 20050323, end: 20051213
  17. FLUNISOLIDE. [Concomitant]
     Active Substance: FLUNISOLIDE
     Route: 045
     Dates: start: 20060223, end: 20060331
  18. MICROGESTIN FE [Suspect]
     Active Substance: ETHINYL ESTRADIOL\FERROUS FUMARATE\NORETHINDRONE ACETATE
     Indication: PRODUCT USED FOR UNKNOWN INDICATION
     Route: 048
     Dates: start: 20050322, end: 20060227
  19. CLARITIN [Concomitant]
     Active Substance: LORATADINE
     Indication: HYPERSENSITIVITY
     Route: 048
     Dates: start: 1998
  20. FLUNISOLIDE. [Concomitant]
     Active Substance: FLUNISOLIDE
     Route: 045
     Dates: start: 20061003, end: 20061003
  21. FLUOCINONIDE 0.05% [Concomitant]
     Active Substance: FLUOCINONIDE
     Route: 065
     Dates: start: 20050323, end: 20051213
  22. FLUNISOLIDE. [Concomitant]
     Active Substance: FLUNISOLIDE
     Route: 045
     Dates: start: 20060223, end: 20060331
  23. LEVLEN [Suspect]
     Active Substance: ETHINYL ESTRADIOL\LEVONORGESTREL
     Indication: PRODUCT USED FOR UNKNOWN INDICATION
     Route: 048
     Dates: start: 20050307, end: 20060207
  24. FLUNISOLIDE. [Concomitant]
     Active Substance: FLUNISOLIDE
     Route: 045
     Dates: start: 20060223, end: 20070223

REACTIONS (6)
  - Ultrasound scan abnormal [Recovered/Resolved]
  - Computerised tomogram abnormal [Recovered/Resolved]
  - Menstruation irregular [Unknown]
  - Intraductal proliferative breast lesion [Recovered/Resolved]
  - Breast calcifications [Unknown]
  - Breast cyst [Unknown]

NARRATIVE: CASE EVENT DATE: 200601
